FAERS Safety Report 5273451-3 (Version None)
Quarter: 2007Q1

REPORT INFORMATION
  Report Type: 
  Country: None (occurrence: None)
  Receive Date: 20061219
  Receipt Date: 20061002
  Transmission Date: 20070707
  Serious: Yes (Hospitalization)
  Sender: FDA-Public Use
  Company Number: US-JNJFOC-20051200505

PATIENT
  Age: 22 Year
  Sex: Female
  Weight: 67.1324 kg

DRUGS (4)
  1. D [Suspect]
     Indication: CONTRACEPTION
     Dosage: 1 DOSE(S), 3 IN 4 WEEK; TRANSDERMAL, 1 DOSE(S), 3 IN 4 WEEK; TRANSDERMAL
     Route: 062
     Dates: start: 20030101, end: 20030301
  2. D [Suspect]
     Indication: CONTRACEPTION
     Dosage: 1 DOSE(S), 3 IN 4 WEEK; TRANSDERMAL, 1 DOSE(S), 3 IN 4 WEEK; TRANSDERMAL
     Route: 062
     Dates: start: 20030501
  3. ORTHO TRI-CYCLEN [Suspect]
     Indication: CONTRACEPTION
  4. SINGULAIR [Concomitant]

REACTIONS (1)
  - ACUTE MYOCARDIAL INFARCTION [None]
